FAERS Safety Report 17467792 (Version 1)
Quarter: 2020Q1

REPORT INFORMATION
  Report Type: Spontaneous
  Country: US (occurrence: US)
  Receive Date: 20200214
  Receipt Date: 20200214
  Transmission Date: 20200409
  Serious: No
  Sender: FDA-Public Use
  Company Number: None

PATIENT
  Age: 66 Year
  Sex: Male

DRUGS (1)
  1. PROCRIT [Suspect]
     Active Substance: ERYTHROPOIETIN
     Dosage: ?          OTHER DOSE:40,000;OTHER FREQUENCY:OTHER;?
     Route: 058
     Dates: start: 20200214

REACTIONS (1)
  - Off label use [None]

NARRATIVE: CASE EVENT DATE: 20200214
